FAERS Safety Report 4290417-0 (Version None)
Quarter: 2004Q1

REPORT INFORMATION
  Report Type: 
  Country: None (occurrence: None)
  Receive Date: 20040209
  Receipt Date: 20040128
  Transmission Date: 20041129
  Serious: Yes (Death, Hospitalization)
  Sender: FDA-Public Use
  Company Number: 2004196977BR

PATIENT
  Age: 84 Year
  Sex: Male

DRUGS (3)
  1. XALATAN [Suspect]
     Indication: GLAUCOMA
     Dosage: 1 GTT, QD, OPHTHALMIC
     Route: 047
     Dates: start: 20010911, end: 20031221
  2. COSOPT [Concomitant]
  3. TEGRETOL [Concomitant]

REACTIONS (2)
  - AORTIC ANEURYSM [None]
  - COUGH [None]
